FAERS Safety Report 5867743-4 (Version None)
Quarter: 2008Q3

REPORT INFORMATION
  Report Type: 
  Country: None (occurrence: None)
  Receive Date: 20080902
  Receipt Date: 20080226
  Transmission Date: 20090109
  Serious: No
  Sender: FDA-Public Use
  Company Number: US-ABBOTT-08P-163-0440738-00

PATIENT
  Sex: Female

DRUGS (3)
  1. DEPAKOTE ER [Suspect]
     Indication: BIPOLAR DISORDER
     Dates: start: 20070101, end: 20070205
  2. DEPAKOTE ER [Suspect]
     Route: 048
     Dates: start: 20070205, end: 20070221
  3. DEPAKOTE ER [Suspect]
     Route: 048
     Dates: start: 20070221, end: 20070315

REACTIONS (1)
  - RASH [None]
